FAERS Safety Report 8291406-1 (Version None)
Quarter: 2012Q2

REPORT INFORMATION
  Report Type: 
  Country: None (occurrence: None)
  Receive Date: 20120417
  Receipt Date: 20120409
  Transmission Date: 20120825
  Serious: Yes (Death)
  Sender: FDA-Public Use
  Company Number: JP-GLAXOSMITHKLINE-B0795321A

PATIENT
  Sex: Male

DRUGS (2)
  1. FLUDARA [Suspect]
     Dates: start: 20020517, end: 20020521
  2. ALKERAN [Suspect]
     Indication: BONE MARROW TRANSPLANT
     Dates: start: 20020520, end: 20020521

REACTIONS (4)
  - SEPSIS [None]
  - CARDIAC FAILURE [None]
  - URINE OUTPUT DECREASED [None]
  - ACUTE PRERENAL FAILURE [None]
